FAERS Safety Report 4293186-3 (Version None)
Quarter: 2004Q1

REPORT INFORMATION
  Report Type: 
  Country: None (occurrence: None)
  Receive Date: 20040210
  Receipt Date: 20040128
  Transmission Date: 20041129
  Serious: Yes (Hospitalization, Other)
  Sender: FDA-Public Use
  Company Number: US-JNJFOC-20030602129

PATIENT
  Age: 63 Year
  Sex: Male
  Weight: 104.3273 kg

DRUGS (1)
  1. REMICADE [Suspect]
     Indication: RHEUMATOID ARTHRITIS

REACTIONS (15)
  - ASTHENIA [None]
  - CRYPTOGENIC ORGANIZING PNEUMONIA [None]
  - DUPUYTREN'S CONTRACTURE [None]
  - FACIAL PALSY [None]
  - FATIGUE [None]
  - FEELING ABNORMAL [None]
  - GASTRITIS [None]
  - HERPES ZOSTER [None]
  - JOINT STIFFNESS [None]
  - MYCOBACTERIUM AVIUM COMPLEX INFECTION [None]
  - OESOPHAGITIS [None]
  - ORAL CANDIDIASIS [None]
  - PERICARDITIS [None]
  - PROSTATIC SPECIFIC ANTIGEN INCREASED [None]
  - RHEUMATOID ARTHRITIS [None]
